FAERS Safety Report 5356459-9 (Version None)
Quarter: 2007Q3

REPORT INFORMATION
  Report Type: 
  Country: None (occurrence: None)
  Receive Date: 20070530
  Receipt Date: 20070109
  Transmission Date: 20080115
  Serious: Yes (Hospitalization)
  Sender: FDA-Public Use
  Company Number: US200609003654

PATIENT
  Age: 30 Year
  Sex: Male
  Weight: 71.7 kg

DRUGS (1)
  1. ZYPREXA [Suspect]
     Dosage: 20 MG
     Dates: start: 19950101, end: 20060101

REACTIONS (1)
  - PANCREATITIS [None]
